FAERS Safety Report 16622324 (Version 1)
Quarter: 2019Q3

REPORT INFORMATION
  Report Type: Spontaneous
  Country: FR (occurrence: FR)
  Receive Date: 20190724
  Receipt Date: 20190724
  Transmission Date: 20191004
  Serious: Yes (Life-Threatening)
  Sender: FDA-Public Use
  Company Number: FR-ZYDUS-038832

PATIENT
  Age: 75 Year
  Sex: Male

DRUGS (15)
  1. BISOPROLOL [Concomitant]
     Active Substance: BISOPROLOL
  2. CANDESARTAN CILEXETIL. [Concomitant]
     Active Substance: CANDESARTAN CILEXETIL
  3. AMIODARONE [Suspect]
     Active Substance: AMIODARONE
     Indication: ARRHYTHMIA
     Route: 048
     Dates: end: 20190606
  4. SITAGLIPTIN [Concomitant]
     Active Substance: SITAGLIPTIN
  5. KARDEGIC [Suspect]
     Active Substance: ASPIRIN DL-LYSINE
     Indication: CORONARY ARTERY BYPASS
     Dosage: 75 MG POWDER FOR ORAL SOLUTION IN A SACHET
     Route: 048
     Dates: start: 20190423, end: 20190527
  6. LANSOPRAZOLE. [Concomitant]
     Active Substance: LANSOPRAZOLE
  7. FUROSEMIDE. [Concomitant]
     Active Substance: FUROSEMIDE
  8. PERMIXON [Concomitant]
     Active Substance: HERBALS\SAW PALMETTO
  9. CLOPIDOGREL [Suspect]
     Active Substance: CLOPIDOGREL BISULFATE
     Indication: CORONARY ARTERY BYPASS
     Route: 048
     Dates: start: 20190423
  10. SALBUTAMOL [Concomitant]
     Active Substance: ALBUTEROL
  11. OXAZEPAM. [Concomitant]
     Active Substance: OXAZEPAM
  12. ULTIBRO BREEZHALER [Concomitant]
     Active Substance: GLYCOPYRRONIUM\INDACATEROL
  13. ATORVASTATIN [Concomitant]
     Active Substance: ATORVASTATIN
  14. VILDAGLIPTINE [Concomitant]
     Active Substance: VILDAGLIPTIN
  15. PREGABALIN. [Concomitant]
     Active Substance: PREGABALIN

REACTIONS (2)
  - Dyspnoea [Recovered/Resolved]
  - Haemoptysis [Recovered/Resolved]

NARRATIVE: CASE EVENT DATE: 20190526
